FAERS Safety Report 20068134 (Version 2)
Quarter: 2021Q4

REPORT INFORMATION
  Report Type: Spontaneous
  Country: US (occurrence: US)
  Receive Date: 20211115
  Receipt Date: 20211125
  Transmission Date: 20220303
  Serious: No
  Sender: FDA-Public Use
  Company Number: US-BIOGEN-2021BI01067124

PATIENT
  Sex: Female

DRUGS (15)
  1. VUMERITY [Suspect]
     Active Substance: DIROXIMEL FUMARATE
     Indication: Multiple sclerosis
     Dosage: FOR 7 DAYS
     Route: 048
  2. VUMERITY [Suspect]
     Active Substance: DIROXIMEL FUMARATE
     Route: 048
  3. AUBAGIO [Concomitant]
     Active Substance: TERIFLUNOMIDE
     Route: 065
  4. BACLOFEN [Concomitant]
     Active Substance: BACLOFEN
     Route: 065
  5. CARAFATE [Concomitant]
     Active Substance: SUCRALFATE
     Route: 065
  6. COENZYME Q10 [Concomitant]
     Active Substance: DIETARY SUPPLEMENT\UBIDECARENONE
     Route: 065
  7. CYMBALTA [Concomitant]
     Active Substance: DULOXETINE HYDROCHLORIDE
     Route: 065
  8. GABAPENTIN [Concomitant]
     Active Substance: GABAPENTIN
     Route: 065
  9. HIPREX [Concomitant]
     Active Substance: METHENAMINE HIPPURATE
     Route: 065
  10. METFORMIN HYDROCHLORIDE [Concomitant]
     Active Substance: METFORMIN HYDROCHLORIDE
     Route: 065
  11. PROTONIX [Concomitant]
     Active Substance: PANTOPRAZOLE SODIUM
     Route: 065
  12. TOPAMAX [Concomitant]
     Active Substance: TOPIRAMATE
     Route: 065
  13. VISTARIL [Concomitant]
     Active Substance: HYDROXYZINE PAMOATE
     Route: 065
  14. WELLBUTRIN [Concomitant]
     Active Substance: BUPROPION HYDROCHLORIDE
     Route: 065
  15. XYZAL [Concomitant]
     Active Substance: LEVOCETIRIZINE DIHYDROCHLORIDE
     Route: 065

REACTIONS (4)
  - Musculoskeletal chest pain [Not Recovered/Not Resolved]
  - Body temperature increased [Not Recovered/Not Resolved]
  - Diarrhoea [Not Recovered/Not Resolved]
  - Abdominal pain upper [Not Recovered/Not Resolved]
